FAERS Safety Report 9212521 (Version 1)
Quarter: 2013Q2

REPORT INFORMATION
  Report Type: Spontaneous
  Country: US (occurrence: US)
  Receive Date: 20130405
  Receipt Date: 20130405
  Transmission Date: 20140414
  Serious: No
  Sender: FDA-Public Use
  Company Number: US-009507513-1304USA000689

PATIENT
  Age: 23 Year
  Sex: Male

DRUGS (1)
  1. SAPHRIS [Suspect]
     Dosage: TWICE DAILY, TWO DOSES A DAY
     Dates: start: 20130319, end: 20130320

REACTIONS (1)
  - Aggression [Recovered/Resolved]
